FAERS Safety Report 24811263 (Version 1)
Quarter: 2025Q1

REPORT INFORMATION
  Report Type: Spontaneous
  Country: US (occurrence: None)
  Receive Date: 20250105
  Receipt Date: 20250105
  Transmission Date: 20250409
  Serious: Yes (Disabling)
  Sender: FDA-CTU
  Company Number: None

PATIENT
  Age: 57 Year
  Sex: Female
  Weight: 52.2 kg

DRUGS (15)
  1. CIPROFLOXACIN [Suspect]
     Active Substance: CIPROFLOXACIN
     Indication: Diverticulitis
     Dosage: 30 CAPSULE(S) 3 TIMES A DAY ORAL
     Route: 048
     Dates: start: 20240711, end: 20240712
  2. FLAGYL [Suspect]
     Active Substance: METRONIDAZOLE\METRONIDAZOLE HYDROCHLORIDE
  3. AUGMENTIN [Suspect]
     Active Substance: AMOXICILLIN\CLAVULANATE POTASSIUM
  4. LISINOPRIL [Concomitant]
     Active Substance: LISINOPRIL
  5. ESTRADIOL [Concomitant]
     Active Substance: ESTRADIOL
  6. PROGESTERONE [Concomitant]
     Active Substance: PROGESTERONE
  7. FISH OIL [Concomitant]
     Active Substance: FISH OIL
  8. VITAMIN D [Concomitant]
     Active Substance: VITAMIN D NOS
  9. ZINC [Concomitant]
     Active Substance: ZINC
  10. HERBALS\TURMERIC [Concomitant]
     Active Substance: HERBALS\TURMERIC
  11. B12 [Concomitant]
  12. FOLIC ACID [Concomitant]
     Active Substance: FOLIC ACID
  13. CALCIUM [Concomitant]
     Active Substance: CALCIUM
  14. Nutrafol for hair [Concomitant]
  15. Powder collagen Culturelle [Concomitant]

REACTIONS (13)
  - Diarrhoea [None]
  - Incontinence [None]
  - Muscle spasms [None]
  - Nausea [None]
  - Haematochezia [None]
  - Arthralgia [None]
  - Arthralgia [None]
  - Neuropathy peripheral [None]
  - Hypoaesthesia [None]
  - Nausea [None]
  - Decreased appetite [None]
  - Dizziness [None]
  - Visual impairment [None]

NARRATIVE: CASE EVENT DATE: 20240712
